FAERS Safety Report 12717831 (Version 1)
Quarter: 2016Q3

REPORT INFORMATION
  Report Type: Spontaneous
  Country: US (occurrence: US)
  Receive Date: 20160906
  Receipt Date: 20160906
  Transmission Date: 20161109
  Serious: No
  Sender: FDA-Public Use
  Company Number: US-AMNEAL PHARMACEUTICALS-2016AMN00368

PATIENT
  Age: 64 Year
  Sex: Male

DRUGS (1)
  1. FLECAINIDE ACETATE. [Suspect]
     Active Substance: FLECAINIDE ACETATE
     Indication: BLOOD PRESSURE MEASUREMENT
     Dosage: 75 MG, 2X/DAY
     Route: 048
     Dates: start: 201503

REACTIONS (2)
  - Blood pressure fluctuation [None]
  - Drug ineffective [None]

NARRATIVE: CASE EVENT DATE: 201508
